FAERS Safety Report 12527637 (Version 1)
Quarter: 2016Q3

REPORT INFORMATION
  Report Type: Spontaneous
  Country: RS (occurrence: RS)
  Receive Date: 20160705
  Receipt Date: 20160705
  Transmission Date: 20161109
  Serious: Yes (Other)
  Sender: FDA-Public Use
  Company Number: RS-HERITAGE PHARMACEUTICALS-2016HTG00171

PATIENT

DRUGS (4)
  1. VERAPAMIL HYDROCHLORIDE. [Suspect]
     Active Substance: VERAPAMIL HYDROCHLORIDE
     Route: 065
  2. UNSPECIFIED BENZODIAZEPINES [Suspect]
     Active Substance: BENZODIAZEPINE
     Route: 065
  3. ENALAPRIL [Suspect]
     Active Substance: ENALAPRIL
     Route: 065
  4. CILAZAPRIL [Suspect]
     Active Substance: CILAZAPRIL ANHYDROUS
     Route: 065

REACTIONS (4)
  - Arrhythmia [Recovered/Resolved]
  - Poisoning [Unknown]
  - Circulatory collapse [Recovered/Resolved]
  - Hypotension [Recovered/Resolved]
